FAERS Safety Report 6832505-8 (Version None)
Quarter: 2010Q3

REPORT INFORMATION
  Report Type: 
  Country: None (occurrence: None)
  Receive Date: 20100712
  Receipt Date: 20070313
  Transmission Date: 20110219
  Serious: No
  Sender: FDA-Public Use
  Company Number: US-PFIZER INC-2007020279

PATIENT
  Sex: Female
  Weight: 53.52 kg

DRUGS (4)
  1. CHANTIX [Suspect]
     Indication: SMOKING CESSATION THERAPY
     Route: 048
     Dates: start: 20070208
  2. NAPROXEN [Suspect]
     Dates: end: 20070312
  3. VYTORIN [Concomitant]
     Dates: end: 20070311
  4. FLEXERIL [Concomitant]

REACTIONS (2)
  - ABDOMINAL DISTENSION [None]
  - CONSTIPATION [None]
